FAERS Safety Report 6078555-3 (Version None)
Quarter: 2009Q1

REPORT INFORMATION
  Report Type: 
  Country: None (occurrence: None)
  Receive Date: 20090212
  Receipt Date: 20090129
  Transmission Date: 20090719
  Serious: Yes (Other)
  Sender: FDA-Public Use
  Company Number: 2009AL000620

PATIENT
  Age: 61 Year
  Sex: Male

DRUGS (2)
  1. LIDOCAINE HYDROCHLORIDE 2% [Suspect]
     Dosage: 1 DF; TOP
     Route: 061
     Dates: start: 20081014
  2. AMITRIPTYLINE [Concomitant]

REACTIONS (1)
  - RASH [None]
